FAERS Safety Report 8406865-0 (Version None)
Quarter: 2012Q2

REPORT INFORMATION
  Report Type: 
  Country: None (occurrence: None)
  Receive Date: 20120604
  Receipt Date: 20120603
  Transmission Date: 20120825
  Serious: Yes (Other)
  Sender: FDA-Public Use
  Company Number: US-PFIZER INC-2012122681

PATIENT
  Sex: Male
  Weight: 104.31 kg

DRUGS (3)
  1. GEMFIBROZIL [Concomitant]
     Indication: BLOOD TRIGLYCERIDES ABNORMAL
     Dosage: 600 MG, 2X/DAY
  2. CHANTIX [Suspect]
     Indication: SMOKING CESSATION THERAPY
     Dosage: 0.5 MG, ONCE
     Route: 048
     Dates: start: 20120503, end: 20120504
  3. PAROXETINE [Concomitant]
     Indication: ANXIETY
     Dosage: 20 MG, DAILY

REACTIONS (5)
  - SWELLING [None]
  - VISION BLURRED [None]
  - SLEEP DISORDER [None]
  - HEADACHE [None]
  - DISORIENTATION [None]
